FAERS Safety Report 16274410 (Version 2)
Quarter: 2019Q3

REPORT INFORMATION
  Report Type: Spontaneous
  Country: US (occurrence: US)
  Receive Date: 20190506
  Receipt Date: 20190709
  Transmission Date: 20191004
  Serious: No
  Sender: FDA-Public Use
  Company Number: US-TEVA-2019-US-1039592

PATIENT
  Age: 42 Year
  Sex: Female
  Weight: 83 kg

DRUGS (13)
  1. CALCIUM [Concomitant]
     Active Substance: CALCIUM
  2. VITAMIN D [Concomitant]
     Active Substance: VITAMIN D NOS
  3. HYDROXYZINE [Concomitant]
     Active Substance: HYDROXYZINE HYDROCHLORIDE
     Indication: ANXIETY
  4. FLEXERIL [Interacting]
     Active Substance: CYCLOBENZAPRINE HYDROCHLORIDE
     Dosage: STOPPED TREATMENT
     Route: 065
  5. AUSTEDO [Suspect]
     Active Substance: DEUTETRABENAZINE
     Indication: TARDIVE DYSKINESIA
     Dosage: NEW TITRATING PATIENT
     Route: 065
     Dates: start: 201902
  6. AUSTEDO [Interacting]
     Active Substance: DEUTETRABENAZINE
     Dosage: 24 MILLIGRAM DAILY;
     Route: 065
     Dates: start: 201903
  7. LEVOTHYROXINE. [Concomitant]
     Active Substance: LEVOTHYROXINE
  8. MELATONIN [Concomitant]
     Active Substance: MELATONIN
     Indication: SLEEP DISORDER
  9. PROZAC [Concomitant]
     Active Substance: FLUOXETINE HYDROCHLORIDE
  10. LAXATIVE [Concomitant]
     Active Substance: UNSPECIFIED INGREDIENT
  11. LAMOTRIGINE. [Concomitant]
     Active Substance: LAMOTRIGINE
  12. VRAYLAR [Concomitant]
     Active Substance: CARIPRAZINE
  13. PAROXETINE. [Interacting]
     Active Substance: PAROXETINE
     Route: 065
     Dates: start: 20190409, end: 20190409

REACTIONS (8)
  - Pain [Unknown]
  - Drug interaction [Unknown]
  - Energy increased [Unknown]
  - Terminal insomnia [Unknown]
  - Muscle strain [Unknown]
  - Paraesthesia [Unknown]
  - Diarrhoea [Recovered/Resolved]
  - Mania [Unknown]

NARRATIVE: CASE EVENT DATE: 20190324
